FAERS Safety Report 4678642-8 (Version None)
Quarter: 2005Q2

REPORT INFORMATION
  Report Type: 
  Country: None (occurrence: None)
  Receive Date: 20050527
  Receipt Date: 20050513
  Transmission Date: 20051028
  Serious: Yes (Disabling, Other)
  Sender: FDA-Public Use
  Company Number: S05-UKI-01892-01

PATIENT
  Age: 21 Year
  Sex: Female

DRUGS (2)
  1. CIPRALEX (ESCITALOPRAM) [Suspect]
     Indication: DEPRESSION
     Dosage: 20 MG QD PO
     Route: 048
     Dates: start: 20050425, end: 20050429
  2. ORTHO EVRA [Concomitant]

REACTIONS (5)
  - CONVULSION [None]
  - FEELING HOT [None]
  - MALAISE [None]
  - MYALGIA [None]
  - SYNCOPE [None]
